FAERS Safety Report 16498327 (Version 1)
Quarter: 2019Q2

REPORT INFORMATION
  Report Type: Spontaneous
  Country: US (occurrence: US)
  Receive Date: 20190629
  Receipt Date: 20190629
  Transmission Date: 20190711
  Serious: No
  Sender: FDA-Public Use
  Company Number: US-TEVA-2019-US-1060394

PATIENT
  Sex: Female

DRUGS (2)
  1. LOVASTATIN 10 MG TABLETS TEVA [Suspect]
     Active Substance: LOVASTATIN
     Indication: PRODUCT USED FOR UNKNOWN INDICATION
     Route: 065
     Dates: start: 20190521
  2. LISINOPRIL. [Suspect]
     Active Substance: LISINOPRIL

REACTIONS (2)
  - Blood cholesterol increased [Unknown]
  - Therapy change [Unknown]

NARRATIVE: CASE EVENT DATE: 20190521
